FAERS Safety Report 5447853-6 (Version None)
Quarter: 2007Q3

REPORT INFORMATION
  Report Type: 
  Country: None (occurrence: None)
  Receive Date: 20070910
  Receipt Date: 20070903
  Transmission Date: 20080115
  Serious: Yes (Other)
  Sender: FDA-Public Use
  Company Number: DE-PFIZER INC-2007073512

PATIENT
  Sex: Male

DRUGS (2)
  1. ZELDOX (CAPSULES) [Suspect]
     Indication: SCHIZOPHRENIA
     Dosage: DAILY DOSE:60MG
     Route: 048
  2. PAROXETIN [Concomitant]
     Route: 048
     Dates: start: 20060101, end: 20070801

REACTIONS (1)
  - SUICIDAL IDEATION [None]
